FAERS Safety Report 7065004-1 (Version None)
Quarter: 2010Q4

REPORT INFORMATION
  Report Type: 
  Country: None (occurrence: None)
  Receive Date: 20101027
  Receipt Date: 20101015
  Transmission Date: 20110411
  Serious: Yes (Hospitalization)
  Sender: FDA-Public Use
  Company Number: CH-ACTELION-A-US2010-40751

PATIENT
  Age: 63 Year
  Sex: Female

DRUGS (13)
  1. VENTAVIS BAYER SCHERING [Suspect]
     Indication: PULMONARY ARTERIAL HYPERTENSION
     Dosage: 10 ?G, UNK
     Route: 055
  2. ANGIOTENSIN II ANTAGONISTS [Concomitant]
  3. DIURETICS [Concomitant]
  4. ASPIRIN [Concomitant]
  5. VANCOMYCIN [Concomitant]
  6. HEPARIN [Concomitant]
  7. DOBUTAMINE [Concomitant]
  8. NORADRENALINE [Concomitant]
  9. FLUCONAZOLE [Concomitant]
  10. CEFTRIAXONE [Concomitant]
  11. REMIFENTANIL [Concomitant]
  12. HALOPERIDOL [Concomitant]
  13. MORPHINE [Concomitant]

REACTIONS (1)
  - THROMBOCYTOPENIA [None]
